FAERS Safety Report 5800172-8 (Version None)
Quarter: 2008Q3

REPORT INFORMATION
  Report Type: 
  Country: None (occurrence: None)
  Receive Date: 20080702
  Receipt Date: 20080702
  Transmission Date: 20090109
  Serious: Yes (Other)
  Sender: FDA-Public Use
  Company Number: None

PATIENT
  Age: 78 Year
  Sex: Female
  Weight: 68.9467 kg

DRUGS (7)
  1. DIGITEK 0.25 BERTECK [Suspect]
     Indication: ARRHYTHMIA
     Dosage: 1QD
  2. TOPROL-XL [Concomitant]
  3. AVAPRO [Concomitant]
  4. VERAPAMIL [Concomitant]
  5. LISINOPRIL [Concomitant]
  6. LIPITOR [Concomitant]
  7. HYDROCHLOROTHIAZIDE [Concomitant]

REACTIONS (1)
  - DIZZINESS [None]
